FAERS Safety Report 12720624 (Version 1)
Quarter: 2016Q3

REPORT INFORMATION
  Report Type: Spontaneous
  Country: US (occurrence: US)
  Receive Date: 20160906
  Receipt Date: 20160906
  Transmission Date: 20161109
  Serious: No
  Sender: FDA-Public Use
  Company Number: None

PATIENT
  Age: 64 Year
  Sex: Female

DRUGS (20)
  1. BREO ELLIPTA [Concomitant]
     Active Substance: FLUTICASONE FUROATE\VILANTEROL TRIFENATATE
  2. MAGNESIUM [Concomitant]
     Active Substance: MAGNESIUM
  3. NITROGLYCERIN SPRAY [Concomitant]
     Active Substance: NITROGLYCERIN
  4. TIZANIDINE. [Concomitant]
     Active Substance: TIZANIDINE
  5. AMITIZA [Concomitant]
     Active Substance: LUBIPROSTONE
  6. GILENYA [Suspect]
     Active Substance: FINGOLIMOD HYDROCHLORIDE
     Indication: MULTIPLE SCLEROSIS
     Route: 048
     Dates: start: 201305, end: 201608
  7. BACLOFEN. [Concomitant]
     Active Substance: BACLOFEN
  8. VITAMIN B COMPLEX [Concomitant]
     Active Substance: CYANOCOBALAMIN\DEXPANTHENOL\NIACINAMIDE\PYRIDOXINE HYDROCHLORIDE\RIBOFLAVIN 5^-PHOSPHATE SODIUM\THIAMINE HYDROCHLORIDE\VITAMIN B COMPLEX
  9. HORSE CHESTIN CAP [Concomitant]
  10. LOSARTAN. [Concomitant]
     Active Substance: LOSARTAN
  11. MELOXICAM. [Concomitant]
     Active Substance: MELOXICAM
  12. LASIX [Concomitant]
     Active Substance: FUROSEMIDE
  13. PROVIGIL [Concomitant]
     Active Substance: MODAFINIL
  14. SPIRIVA [Concomitant]
     Active Substance: TIOTROPIUM BROMIDE MONOHYDRATE
  15. VENTOLIN [Concomitant]
     Active Substance: ALBUTEROL SULFATE
  16. VITAMIN D3 [Concomitant]
     Active Substance: CHOLECALCIFEROL
  17. LAMICTAL [Concomitant]
     Active Substance: LAMOTRIGINE
  18. LISINOPRIL. [Concomitant]
     Active Substance: LISINOPRIL
  19. MULTIVITAMIN [Concomitant]
     Active Substance: VITAMINS
  20. VIVELLE-DOT DIS [Concomitant]

REACTIONS (1)
  - Therapy non-responder [None]

NARRATIVE: CASE EVENT DATE: 201608
